FAERS Safety Report 9616325 (Version 1)
Quarter: 2013Q4

REPORT INFORMATION
  Report Type: Spontaneous
  Country: US (occurrence: None)
  Receive Date: 20131010
  Receipt Date: 20131010
  Transmission Date: 20140711
  Serious: Yes (Hospitalization)
  Sender: FDA-Public Use
  Company Number: None

PATIENT
  Age: 61 Year
  Sex: Male
  Weight: 83.4 kg

DRUGS (4)
  1. 5-FLUOROURACIL (5-FU) [Suspect]
  2. LEUCOVORIN CALCIUM [Suspect]
  3. OXALIPLATIN (ELOXATIN) [Suspect]
  4. MORPHINE SULFATE [Concomitant]

REACTIONS (2)
  - Abdominal pain [None]
  - Intestinal obstruction [None]
